FAERS Safety Report 9322584 (Version 1)
Quarter: 2013Q2

REPORT INFORMATION
  Report Type: Spontaneous
  Country: SE (occurrence: SE)
  Receive Date: 20130531
  Receipt Date: 20130531
  Transmission Date: 20140414
  Serious: Yes (Disabling)
  Sender: FDA-Public Use
  Company Number: SE-ABBOTT-13P-150-1051124-00

PATIENT
  Age: 62 Year
  Sex: Male

DRUGS (4)
  1. HUMIRA [Suspect]
     Indication: PSORIASIS
     Dates: start: 20120616, end: 201208
  2. INFLIXIMAB [Suspect]
     Indication: PSORIASIS
     Dates: end: 201201
  3. AMLODIPIN [Concomitant]
     Indication: HYPERTENSION
  4. LOSARTAN [Concomitant]
     Indication: HYPERTENSION

REACTIONS (9)
  - Balance disorder [Not Recovered/Not Resolved]
  - Balance disorder [Unknown]
  - Dizziness [Unknown]
  - Neuralgia [Unknown]
  - Monoplegia [Unknown]
  - Sensory disturbance [Unknown]
  - Vitamin B12 deficiency [Recovering/Resolving]
  - Diplopia [Unknown]
  - Demyelination [Not Recovered/Not Resolved]
